FAERS Safety Report 5633003-X (Version None)
Quarter: 2008Q1

REPORT INFORMATION
  Report Type: 
  Country: None (occurrence: None)
  Receive Date: 20080214
  Receipt Date: 20080131
  Transmission Date: 20080703
  Serious: Yes (Disabling)
  Sender: FDA-Public Use
  Company Number: 2008EU000040

PATIENT
  Sex: Female
  Weight: 70 kg

DRUGS (3)
  1. VESICARE [Suspect]
     Indication: HYPERTONIC BLADDER
     Dosage: 10 MG, /D, ORAL
     Route: 048
     Dates: start: 20071029, end: 20071201
  2. MINI-PILL (NORETHISTERONE) [Concomitant]
  3. DETRUSITOL (TOLTERODINE) [Concomitant]

REACTIONS (3)
  - DYSGEUSIA [None]
  - FEELING ABNORMAL [None]
  - GASTROOESOPHAGEAL REFLUX DISEASE [None]
